FAERS Safety Report 22027176 (Version 1)
Quarter: 2023Q1

REPORT INFORMATION
  Report Type: Spontaneous
  Country: PL (occurrence: None)
  Receive Date: 20230223
  Receipt Date: 20230223
  Transmission Date: 20230417
  Serious: Yes (Life-Threatening)
  Sender: FDA-Public Use
  Company Number: 2023A041889

PATIENT
  Age: 29 Year
  Sex: Female

DRUGS (1)
  1. QUETIAPINE [Suspect]
     Active Substance: QUETIAPINE

REACTIONS (2)
  - Suicide attempt [Recovered/Resolved]
  - Emotional distress [Recovered/Resolved]
